FAERS Safety Report 4640620-2 (Version None)
Quarter: 2005Q2

REPORT INFORMATION
  Report Type: 
  Country: None (occurrence: None)
  Receive Date: 20050419
  Receipt Date: 20050406
  Transmission Date: 20051028
  Serious: Yes (Disabling)
  Sender: FDA-Public Use
  Company Number: 2005056255

PATIENT
  Age: 80 Year
  Sex: Male
  Weight: 88 kg

DRUGS (7)
  1. ATORVASTATIN CALCIUM [Suspect]
     Indication: HYPERLIPIDAEMIA
     Dosage: (80 MG), ORAL
     Route: 048
     Dates: start: 20000801, end: 20050321
  2. ATORVASTATIN CALCIUM [Suspect]
     Indication: MYOCARDIAL ISCHAEMIA
     Dosage: (80 MG), ORAL
     Route: 048
     Dates: start: 20000801, end: 20050321
  3. ASPIRIN [Concomitant]
  4. SOTALOL HCL [Concomitant]
  5. DILTIAZEM HYDROCHLORIDE [Concomitant]
  6. SIMVASTATIN [Concomitant]
  7. CERIVASTATIN (CERIVASTATIN) [Concomitant]

REACTIONS (1)
  - TENDON RUPTURE [None]
